FAERS Safety Report 17699016 (Version 1)
Quarter: 2020Q2

REPORT INFORMATION
  Report Type: Spontaneous
  Country: FR (occurrence: FR)
  Receive Date: 20200423
  Receipt Date: 20200423
  Transmission Date: 20200714
  Serious: Yes (Other)
  Sender: FDA-Public Use
  Company Number: FR-TEVA-2020-FR-1226293

PATIENT
  Age: 43 Year
  Sex: Male

DRUGS (1)
  1. AMOXICILLINE BASE [Suspect]
     Active Substance: AMOXICILLIN
     Indication: ANTIBIOTIC PROPHYLAXIS
     Dosage: 1 DOSAGE FORMS
     Route: 048
     Dates: start: 201910, end: 201910

REACTIONS (1)
  - Anaphylactoid reaction [Recovered/Resolved]

NARRATIVE: CASE EVENT DATE: 201910
